FAERS Safety Report 12474618 (Version 6)
Quarter: 2016Q4

REPORT INFORMATION
  Report Type: Report from Study
  Country: US (occurrence: US)
  Receive Date: 20160617
  Receipt Date: 20161028
  Transmission Date: 20170207
  Serious: Yes (Other)
  Sender: FDA-Public Use
  Company Number: US-AMGEN-USASL2016076463

PATIENT
  Age: 73 Year
  Sex: Female

DRUGS (2)
  1. ENBREL [Suspect]
     Active Substance: ETANERCEPT
     Indication: RHEUMATOID ARTHRITIS
     Dosage: 50 MG, QWK
     Route: 065
     Dates: start: 20160408, end: 201606
  2. ENBREL [Suspect]
     Active Substance: ETANERCEPT
     Dosage: 50 MG, QWK
     Route: 065
     Dates: start: 20161021

REACTIONS (14)
  - Rheumatoid arthritis [Unknown]
  - Injection site reaction [Not Recovered/Not Resolved]
  - Injection site urticaria [Unknown]
  - Arthropathy [Unknown]
  - Oropharyngeal pain [Not Recovered/Not Resolved]
  - Gait disturbance [Unknown]
  - Therapy non-responder [Not Recovered/Not Resolved]
  - Injection site erythema [Not Recovered/Not Resolved]
  - Injection site pain [Unknown]
  - Injection site discolouration [Unknown]
  - Arthralgia [Unknown]
  - Carpal tunnel syndrome [Recovered/Resolved]
  - Peripheral swelling [Not Recovered/Not Resolved]
  - Mobility decreased [Unknown]

NARRATIVE: CASE EVENT DATE: 2016
